FAERS Safety Report 5319588-1 (Version None)
Quarter: 2007Q2

REPORT INFORMATION
  Report Type: 
  Country: None (occurrence: None)
  Receive Date: 20070508
  Receipt Date: 20070427
  Transmission Date: 20071010
  Serious: Yes (Other)
  Sender: FDA-Public Use
  Company Number: US-PFIZER INC-2007035108

PATIENT
  Sex: Male
  Weight: 154.54 kg

DRUGS (4)
  1. CHANTIX [Suspect]
     Indication: EX-SMOKER
  2. ANTIHYPERTENSIVES [Concomitant]
  3. LIPITOR [Concomitant]
  4. NEXIUM [Concomitant]

REACTIONS (4)
  - BACK PAIN [None]
  - ROAD TRAFFIC ACCIDENT [None]
  - SMOKER [None]
  - WHIPLASH INJURY [None]
